FAERS Safety Report 18901449 (Version 1)
Quarter: 2021Q1

REPORT INFORMATION
  Report Type: Spontaneous
  Country: FR (occurrence: FR)
  Receive Date: 20210217
  Receipt Date: 20210217
  Transmission Date: 20210420
  Serious: Yes (Hospitalization, Other)
  Sender: FDA-Public Use
  Company Number: FR-AUROBINDO-AUR-APL-2021-006419

PATIENT
  Age: 70 Year
  Sex: Male

DRUGS (1)
  1. MEROPENEM. [Suspect]
     Active Substance: MEROPENEM
     Indication: BACTERAEMIA
     Dosage: 6 GRAM, ONCE A DAY
     Route: 042
     Dates: start: 20201218, end: 20210118

REACTIONS (4)
  - Rash [Recovered/Resolved]
  - Agranulocytosis [Recovering/Resolving]
  - Eosinophilia [Recovered/Resolved]
  - Seizure [Recovered/Resolved]

NARRATIVE: CASE EVENT DATE: 20201231
